FAERS Safety Report 9940831 (Version 2)
Quarter: 2014Q2

REPORT INFORMATION
  Report Type: Spontaneous
  Country: US (occurrence: US)
  Receive Date: 20140303
  Receipt Date: 20140404
  Transmission Date: 20141212
  Serious: No
  Sender: FDA-Public Use
  Company Number: US-PFIZER INC-2014058842

PATIENT
  Sex: Female

DRUGS (2)
  1. GABAPENTIN [Suspect]
     Indication: FIBROMYALGIA
     Dosage: 300 MG, UNK
  2. GABAPENTIN [Suspect]
     Indication: POST HERPETIC NEURALGIA
     Dosage: 600 MG, 4X/DAY

REACTIONS (2)
  - Dysphagia [Unknown]
  - Dry mouth [Unknown]
